FAERS Safety Report 4920697-7 (Version None)
Quarter: 2006Q1

REPORT INFORMATION
  Report Type: 
  Country: None (occurrence: None)
  Receive Date: 20060217
  Receipt Date: 20060207
  Transmission Date: 20060701
  Serious: Yes (Hospitalization)
  Sender: FDA-Public Use
  Company Number: CHPA2005US08305

PATIENT
  Age: 41 Year
  Sex: Female
  Weight: 61.2 kg

DRUGS (4)
  1. TRANSDERM SCOP [Suspect]
     Indication: VERTIGO
     Dosage: 1.5 MG, TRANSDERMAL
     Route: 062
     Dates: start: 20051108, end: 20051117
  2. CYMBALTA [Concomitant]
  3. DICLOFENAC SODIUM [Concomitant]
  4. COLAZAL (BALSALAZIDE SODIUM) [Concomitant]

REACTIONS (6)
  - ABNORMAL SENSATION IN EYE [None]
  - ACCIDENTAL EXPOSURE [None]
  - HYPOTENSION [None]
  - MYDRIASIS [None]
  - PUPILLARY LIGHT REFLEX TESTS ABNORMAL [None]
  - VISION BLURRED [None]
